FAERS Safety Report 23782458 (Version 1)
Quarter: 2024Q2

REPORT INFORMATION
  Report Type: Spontaneous
  Country: US (occurrence: None)
  Receive Date: 20240423
  Receipt Date: 20240423
  Transmission Date: 20240716
  Serious: Yes (Death, Life-Threatening, Other)
  Sender: FDA-Public Use
  Company Number: None

PATIENT
  Age: 36 Year
  Sex: Female
  Weight: 47.17 kg

DRUGS (3)
  1. PARAGARD T 380A [Suspect]
     Active Substance: COPPER
  2. PROBIOTICS NOS [Concomitant]
     Active Substance: PROBIOTICS NOS
  3. LEXAPRO [Concomitant]

REACTIONS (8)
  - Intermenstrual bleeding [None]
  - Heavy menstrual bleeding [None]
  - Abdominal pain [None]
  - Abdominal discomfort [None]
  - Abdominal pain [None]
  - Pregnancy with contraceptive device [None]
  - Maternal exposure timing unspecified [None]
  - Abortion spontaneous [None]

NARRATIVE: CASE EVENT DATE: 20240403
